FAERS Safety Report 8130531-2 (Version None)
Quarter: 2012Q1

REPORT INFORMATION
  Report Type: 
  Country: None (occurrence: None)
  Receive Date: 20120210
  Receipt Date: 20120206
  Transmission Date: 20120608
  Serious: Yes (Life-Threatening)
  Sender: FDA-Public Use
  Company Number: US-ASTRAZENECA-2012SE07846

PATIENT
  Sex: Female

DRUGS (3)
  1. ATENOLOL [Suspect]
     Route: 048
  2. ZESTORETIC [Suspect]
     Route: 048
  3. BACTRIM [Suspect]
     Route: 065

REACTIONS (2)
  - ILL-DEFINED DISORDER [None]
  - DRUG HYPERSENSITIVITY [None]
